FAERS Safety Report 11328700 (Version 1)
Quarter: 2015Q3

REPORT INFORMATION
  Report Type: Spontaneous
  Country: US (occurrence: US)
  Receive Date: 20150731
  Receipt Date: 20150731
  Transmission Date: 20151125
  Serious: Yes (Hospitalization, Other)
  Sender: FDA-Public Use
  Company Number: US-GLAXOSMITHKLINE-US2015109477

PATIENT
  Age: 77 Year
  Sex: Female

DRUGS (17)
  1. VENTOLIN HFA [Suspect]
     Active Substance: ALBUTEROL SULFATE
     Dosage: UNK
  2. BENZONATATE. [Concomitant]
     Active Substance: BENZONATATE
  3. IPRATROPIUM [Concomitant]
     Active Substance: IPRATROPIUM
  4. LIPITOR [Concomitant]
     Active Substance: ATORVASTATIN CALCIUM
  5. COREG [Concomitant]
     Active Substance: CARVEDILOL
  6. ALDACTONE [Concomitant]
     Active Substance: SPIRONOLACTONE
  7. PREDNISONE. [Concomitant]
     Active Substance: PREDNISONE
  8. VENTOLIN HFA [Suspect]
     Active Substance: ALBUTEROL SULFATE
     Indication: CHRONIC OBSTRUCTIVE PULMONARY DISEASE
     Dosage: 2 PUFF(S), PRN
     Route: 055
  9. RANEXA [Concomitant]
     Active Substance: RANOLAZINE
  10. MEROPENEM. [Concomitant]
     Active Substance: MEROPENEM
  11. VITAMIN C [Concomitant]
     Active Substance: ASCORBIC ACID
  12. ALBUTEROL. [Concomitant]
     Active Substance: ALBUTEROL
  13. SYMBICORT [Concomitant]
     Active Substance: BUDESONIDE\FORMOTEROL FUMARATE DIHYDRATE
  14. TYLENOL [Concomitant]
     Active Substance: ACETAMINOPHEN
  15. OMEPRAZOLE. [Concomitant]
     Active Substance: OMEPRAZOLE
  16. ASPIRIN. [Concomitant]
     Active Substance: ASPIRIN
  17. DIGOXIN. [Concomitant]
     Active Substance: DIGOXIN

REACTIONS (3)
  - Chronic obstructive pulmonary disease [Not Recovered/Not Resolved]
  - Pneumonia [Recovering/Resolving]
  - Pseudomonas infection [Unknown]

NARRATIVE: CASE EVENT DATE: 201504
